FAERS Safety Report 11853756 (Version 2)
Quarter: 2015Q4

REPORT INFORMATION
  Report Type: Spontaneous
  Country: JP (occurrence: JP)
  Receive Date: 20151219
  Receipt Date: 20151225
  Transmission Date: 20160305
  Serious: Yes (Other)
  Sender: FDA-Public Use
  Company Number: JP-AMGEN-JPNSP2015136491

PATIENT
  Age: 66 Year
  Sex: Female

DRUGS (4)
  1. ERIBULIN MESILATE [Suspect]
     Active Substance: ERIBULIN
     Indication: BONE MARROW INFILTRATION
     Dosage: 0.7 MG/M2, UNK
     Route: 042
  2. G-LASTA [Suspect]
     Active Substance: PEGFILGRASTIM
     Indication: COLONY STIMULATING FACTOR PROPHYLAXIS
     Dosage: 3.6 MG, UNK
     Route: 058
  3. G-LASTA [Suspect]
     Active Substance: PEGFILGRASTIM
     Indication: COLONY STIMULATING FACTOR PROPHYLAXIS
  4. GRAN [Suspect]
     Active Substance: FILGRASTIM
     Indication: PRODUCT USED FOR UNKNOWN INDICATION
     Dosage: 75 MCG UNK
     Route: 065

REACTIONS (3)
  - Thrombocytopenia [Unknown]
  - Pyrexia [Unknown]
  - Neutropenia [Unknown]
